FAERS Safety Report 8786228 (Version 2)
Quarter: 2012Q4

REPORT INFORMATION
  Report Type: Report from Study
  Country: GB (occurrence: GB)
  Receive Date: 20120914
  Receipt Date: 20121205
  Transmission Date: 20130627
  Serious: Yes (Hospitalization)
  Sender: FDA-Public Use
  Company Number: GB-PFIZER INC-2012222378

PATIENT
  Age: 65 Year
  Sex: Female
  Weight: 49.5 kg

DRUGS (5)
  1. EPIRUBICIN HCL [Suspect]
     Indication: MALIGNANT BREAST NEOPLASM
     Dosage: 146 mg, thrice in a week
     Route: 042
     Dates: start: 20120823
  2. CYCLOPHOSPHAMIDE [Suspect]
     Indication: MALIGNANT BREAST NEOPLASM
     Dosage: 730 mg, thrice in a week
     Route: 042
     Dates: start: 20120823
  3. FLUOROURACIL [Suspect]
     Indication: MALIGNANT BREAST NEOPLASM
     Dosage: 730 mg, thrice in a week
     Route: 042
     Dates: start: 20120823
  4. NAPROXEN [Concomitant]
  5. CODEINE PHOSPHATE/PARACETAMOL [Concomitant]

REACTIONS (1)
  - Neutropenic sepsis [Recovered/Resolved]
